FAERS Safety Report 15205697 (Version 2)
Quarter: 2018Q3

REPORT INFORMATION
  Report Type: Report from Study
  Country: None (occurrence: IL)
  Receive Date: 20180727
  Receipt Date: 20180817
  Transmission Date: 20181010
  Serious: Yes (Death, Hospitalization)
  Sender: FDA-Public Use
  Company Number: IL-ABBVIE-18S-082-2430370-00

PATIENT
  Age: 81 Year
  Sex: Male

DRUGS (9)
  1. LOTAN [Concomitant]
     Indication: PRODUCT USED FOR UNKNOWN INDICATION
  2. DUODOPA [Suspect]
     Active Substance: CARBIDOPA\LEVODOPA
     Indication: PARKINSON^S DISEASE
     Dosage: MORNING DOSE 8ML,??CONTINUOUS DOSE 1.5ML/HOUR,??EXTRA DOSE 1ML
     Route: 050
     Dates: start: 20180708, end: 20180715
  3. SIFROL [Concomitant]
     Active Substance: PRAMIPEXOLE
     Indication: PRODUCT USED FOR UNKNOWN INDICATION
  4. VITAMIN D3 [Concomitant]
     Active Substance: CHOLECALCIFEROL
     Indication: PRODUCT USED FOR UNKNOWN INDICATION
  5. LOSARDEX [Concomitant]
     Active Substance: LOSARTAN POTASSIUM
     Indication: PRODUCT USED FOR UNKNOWN INDICATION
  6. ZOLPIDEM TARTRATE. [Concomitant]
     Active Substance: ZOLPIDEM TARTRATE
     Indication: PRODUCT USED FOR UNKNOWN INDICATION
  7. BETOPTIC S COL [Concomitant]
     Indication: PRODUCT USED FOR UNKNOWN INDICATION
  8. STALEVO [Concomitant]
     Active Substance: CARBIDOPA\ENTACAPONE\LEVODOPA
     Indication: PRODUCT USED FOR UNKNOWN INDICATION
     Dosage: 100/25/200 MG
     Route: 048
  9. STALEVO [Concomitant]
     Active Substance: CARBIDOPA\ENTACAPONE\LEVODOPA
     Dosage: 75/18.75/200 MG

REACTIONS (10)
  - Inflammatory marker increased [Fatal]
  - Pneumonia [Fatal]
  - Pyrexia [Fatal]
  - Crepitations [Fatal]
  - Hallucination [Not Recovered/Not Resolved]
  - Acute respiratory distress syndrome [Fatal]
  - Respiratory disorder [Fatal]
  - Aspiration [Unknown]
  - Sepsis [Fatal]
  - Cardiac arrest [Fatal]

NARRATIVE: CASE EVENT DATE: 2018
